FAERS Safety Report 12058822 (Version 1)
Quarter: 2016Q1

REPORT INFORMATION
  Report Type: Spontaneous
  Country: US (occurrence: None)
  Receive Date: 20160209
  Receipt Date: 20160209
  Transmission Date: 20160526
  Serious: Yes (Disabling)
  Sender: FDA-Public Use
  Company Number: None

PATIENT
  Age: 72 Year
  Sex: Male
  Weight: 81.65 kg

DRUGS (4)
  1. LISINOPHIL-HCTZ [Suspect]
     Active Substance: HYDROCHLOROTHIAZIDE\LISINOPRIL
     Indication: HYPERTENSION
     Dosage: 12.5 ONCE DAILY MOUTH
     Route: 048
     Dates: start: 20160107, end: 20160122
  2. GARLIC. [Concomitant]
     Active Substance: GARLIC
  3. FLAX SEED [Concomitant]
     Active Substance: FLAX SEED
  4. MULTI-VITAMINS [Concomitant]

REACTIONS (1)
  - Renal pain [None]

NARRATIVE: CASE EVENT DATE: 20160122
